FAERS Safety Report 8476602-2 (Version None)
Quarter: 2012Q2

REPORT INFORMATION
  Report Type: 
  Country: None (occurrence: None)
  Receive Date: 20120628
  Receipt Date: 20120614
  Transmission Date: 20120825
  Serious: No
  Sender: FDA-Public Use
  Company Number: US-ASTRAZENECA-2012SE39856

PATIENT
  Age: 68 Year
  Sex: Male
  Weight: 108 kg

DRUGS (5)
  1. ACETYLSALICYLIC ACID SRT [Interacting]
  2. ATORVASTATIN [Interacting]
     Dates: end: 20120501
  3. SEROQUEL [Suspect]
     Route: 048
  4. OMEPRAZOLE (PRISOLEC) [Interacting]
     Route: 048
  5. PLAVIX [Interacting]
     Indication: PROPHYLAXIS
     Dates: start: 20120521

REACTIONS (4)
  - NAUSEA [None]
  - DRUG INTERACTION [None]
  - MUSCLE SPASMS [None]
  - NEUROPATHY PERIPHERAL [None]
